FAERS Safety Report 16640367 (Version 1)
Quarter: 2019Q3

REPORT INFORMATION
  Report Type: Spontaneous
  Country: BE (occurrence: BE)
  Receive Date: 20190728
  Receipt Date: 20190728
  Transmission Date: 20191004
  Serious: Yes (Other)
  Sender: FDA-Public Use
  Company Number: BE-ABBVIE-19K-013-2865872-00

PATIENT

DRUGS (1)
  1. MAVIRET [Suspect]
     Active Substance: GLECAPREVIR\PIBRENTASVIR
     Indication: CHRONIC HEPATITIS C
     Route: 048

REACTIONS (7)
  - Glomerulonephritis [Unknown]
  - Dermatitis bullous [Unknown]
  - Thrombocytopenia [Not Recovered/Not Resolved]
  - Fibrosis [Unknown]
  - Serositis [Unknown]
  - Systemic lupus erythematosus [Unknown]
  - Marginal zone lymphoma [Unknown]
